FAERS Safety Report 15338960 (Version 1)
Quarter: 2018Q3

REPORT INFORMATION
  Report Type: Spontaneous
  Country: BR (occurrence: BR)
  Receive Date: 20180831
  Receipt Date: 20180831
  Transmission Date: 20181010
  Serious: Yes (Other)
  Sender: FDA-Public Use
  Company Number: BR-009507513-1808BRA010936

PATIENT
  Age: 64 Year
  Sex: Male
  Weight: 75 kg

DRUGS (1)
  1. JANUMET [Suspect]
     Active Substance: METFORMIN HYDROCHLORIDE\SITAGLIPTIN PHOSPHATE
     Dosage: 1 TABLET (STRENGTH: 50 MG/1000MG) BEFORE BREAKFAST, 1 TABLET BEFORE LUNCH AND 1 TABLET BEFORE DINNER
     Route: 048
     Dates: start: 2002, end: 201806

REACTIONS (4)
  - Inappropriate schedule of drug administration [Unknown]
  - Adverse event [Unknown]
  - Coronary arterial stent insertion [Unknown]
  - Hypertension [Unknown]

NARRATIVE: CASE EVENT DATE: 2002
